FAERS Safety Report 8874026 (Version 1)
Quarter: 2012Q4

REPORT INFORMATION
  Report Type: 
  Country: DE (occurrence: DE)
  Receive Date: 20121030
  Receipt Date: 20121030
  Transmission Date: 20130627
  Serious: Yes (Life-Threatening, Other)
  Sender: FDA-Public Use
  Company Number: DE-PFIZER INC-2012266174

PATIENT
  Age: 86 Year
  Sex: Female
  Weight: 82 kg

DRUGS (4)
  1. LYRICA [Suspect]
     Indication: RADICULITIS
     Dosage: 150 mg, 2x/day
     Route: 048
     Dates: start: 20121006
  2. LONITEN [Concomitant]
     Indication: HYPERTENSION
     Dosage: 2.5 mg, 2x/day since over ten years
     Route: 048
  3. DIGIMERCK [Concomitant]
     Indication: CARDIAC FAILURE
     Dosage: 0.07 mg, 1x/day
     Route: 048
     Dates: start: 20121006
  4. CLONIDINE [Concomitant]
     Indication: HYPERTENSION
     Dosage: 250 mg, UNK, since over ten years
     Route: 048

REACTIONS (4)
  - Muscle contractions involuntary [Not Recovered/Not Resolved]
  - Motor dysfunction [Not Recovered/Not Resolved]
  - Hallucination [Unknown]
  - Vision blurred [Unknown]
